FAERS Safety Report 19701638 (Version 1)
Quarter: 2021Q3

REPORT INFORMATION
  Report Type: Spontaneous
  Country: SE (occurrence: SE)
  Receive Date: 20210813
  Receipt Date: 20210813
  Transmission Date: 20211014
  Serious: Yes (Hospitalization)
  Sender: FDA-Public Use
  Company Number: SE-PERRIGO-21SE010213

PATIENT

DRUGS (3)
  1. INSULIN [Suspect]
     Active Substance: INSULIN NOS
     Dates: start: 202107, end: 202107
  2. PARACETAMOL [Suspect]
     Active Substance: ACETAMINOPHEN
     Indication: PRODUCT USED FOR UNKNOWN INDICATION
     Dosage: UNK
     Route: 065
     Dates: start: 202107, end: 202107
  3. LITIUMKARBONAT [Suspect]
     Active Substance: LITHIUM CARBONATE
     Dates: start: 202107, end: 202107

REACTIONS (4)
  - Intentional self-injury [Recovering/Resolving]
  - Intentional overdose [Recovering/Resolving]
  - Hyperinsulinaemic hypoglycaemia [Recovering/Resolving]
  - Toxicity to various agents [Recovering/Resolving]

NARRATIVE: CASE EVENT DATE: 202107
